FAERS Safety Report 8833945 (Version 1)
Quarter: 2012Q4

REPORT INFORMATION
  Report Type: Spontaneous
  Country: US (occurrence: None)
  Receive Date: 20121010
  Receipt Date: 20121010
  Transmission Date: 20130627
  Serious: Yes (Life-Threatening, Hospitalization, Disabling, Other)
  Sender: FDA-Public Use
  Company Number: None

PATIENT
  Sex: Female
  Weight: 81.65 kg

DRUGS (1)
  1. MIRENA IUD [Suspect]
     Indication: BIRTH CONTROL
     Dates: start: 20050301, end: 20100714

REACTIONS (5)
  - Device dislocation [None]
  - Pelvic infection [None]
  - Ovarian cyst [None]
  - Abdominal adhesions [None]
  - Abdominal adhesions [None]
